FAERS Safety Report 5854710-X (Version None)
Quarter: 2008Q3

REPORT INFORMATION
  Report Type: 
  Country: None (occurrence: None)
  Receive Date: 20080822
  Receipt Date: 20080814
  Transmission Date: 20090109
  Serious: Yes (Other)
  Sender: FDA-Public Use
  Company Number: JP-PFIZER INC-2008068059

PATIENT

DRUGS (3)
  1. UNASYN [Suspect]
     Dosage: DAILY DOSE:3GRAM
     Route: 042
  2. UNASYN [Suspect]
     Dosage: DAILY DOSE:6GRAM
     Route: 042
  3. ALL OTHER THERAPEUTIC PRODUCTS [Concomitant]

REACTIONS (1)
  - RENAL FAILURE ACUTE [None]
